FAERS Safety Report 17339085 (Version 1)
Quarter: 2020Q1

REPORT INFORMATION
  Report Type: Spontaneous
  Country: US (occurrence: US)
  Receive Date: 20200128
  Receipt Date: 20200128
  Transmission Date: 20200409
  Serious: Yes (Hospitalization)
  Sender: FDA-Public Use
  Company Number: None

PATIENT
  Age: 58 Year
  Sex: Male

DRUGS (4)
  1. TRELSTAR MIX INJ 3.75 MG [Concomitant]
  2. ZYTIGA [Suspect]
     Active Substance: ABIRATERONE ACETATE
     Indication: PROSTATE CANCER
     Route: 048
     Dates: start: 20170221
  3. CENTRUM TAB SILVER [Concomitant]
  4. XGEVA [Concomitant]
     Active Substance: DENOSUMAB

REACTIONS (2)
  - Sepsis [None]
  - Therapy cessation [None]
